FAERS Safety Report 25647175 (Version 2)
Quarter: 2025Q3

REPORT INFORMATION
  Report Type: Spontaneous
  Country: EU (occurrence: EU)
  Receive Date: 20250806
  Receipt Date: 20250903
  Transmission Date: 20251021
  Serious: Yes (Life-Threatening, Hospitalization, Other)
  Sender: ALEXION PHARMACEUTICALS
  Company Number: EU-AstraZeneca-CH-00923795A

PATIENT
  Age: 81 Year
  Sex: Male
  Weight: 83 kg

DRUGS (22)
  1. DAPAGLIFLOZIN [Suspect]
     Active Substance: DAPAGLIFLOZIN
     Indication: Chronic kidney disease
     Dosage: 10 MILLIGRAM, QD
     Dates: start: 20240527
  2. Acard [Concomitant]
  3. Adatam [Concomitant]
  4. CARVEDILOL [Concomitant]
     Active Substance: CARVEDILOL
  5. IRON DEXTRAN [Concomitant]
     Active Substance: IRON DEXTRAN
  6. Ezen [Concomitant]
  7. FUROSEMIDE [Concomitant]
     Active Substance: FUROSEMIDE
  8. FUROSEMIDE [Concomitant]
     Active Substance: FUROSEMIDE
  9. OMEPRAZOLE [Concomitant]
     Active Substance: OMEPRAZOLE
  10. Lapixen [Concomitant]
  11. METOPROLOL TARTRATE [Concomitant]
     Active Substance: METOPROLOL TARTRATE
  12. ALLOPURINOL [Concomitant]
     Active Substance: ALLOPURINOL
  13. SODIUM CHLORIDE [Concomitant]
     Active Substance: SODIUM CHLORIDE
  14. FINASTERIDE [Concomitant]
     Active Substance: FINASTERIDE
  15. NITROGLYCERIN [Concomitant]
     Active Substance: NITROGLYCERIN
  16. PLAVIX [Concomitant]
     Active Substance: CLOPIDOGREL BISULFATE
  17. PLAVIX [Concomitant]
     Active Substance: CLOPIDOGREL BISULFATE
  18. Polvertic [Concomitant]
  19. LOSARTAN POTASSIUM [Concomitant]
     Active Substance: LOSARTAN POTASSIUM
  20. ROSUVASTATIN CALCIUM [Concomitant]
     Active Substance: ROSUVASTATIN CALCIUM
  21. ROSUVASTATIN CALCIUM [Concomitant]
     Active Substance: ROSUVASTATIN CALCIUM
  22. Zarixa [Concomitant]

REACTIONS (25)
  - Pulmonary oedema [Unknown]
  - Fluid retention [Unknown]
  - Vasodilatation [Unknown]
  - Arteriosclerosis [Unknown]
  - Arteriosclerosis [Unknown]
  - Nodule [Unknown]
  - Stenosis [Unknown]
  - Thrombosis [Unknown]
  - Cyst [Unknown]
  - Hernia [Unknown]
  - Diverticulum intestinal [Unknown]
  - Cardiac hypertrophy [Unknown]
  - Ventricular asystole [Unknown]
  - Blood pressure diastolic normal [Unknown]
  - Stenosis [Unknown]
  - Ventricular extrasystoles [Unknown]
  - Dyspnoea [Unknown]
  - Hypertension [Unknown]
  - Oedema peripheral [Unknown]
  - Stasis dermatitis [Unknown]
  - Cardiac failure [Unknown]
  - Anaemia macrocytic [Unknown]
  - Blood creatinine increased [Unknown]
  - Cardiac septal hypertrophy [Unknown]
  - Ventricular asystole [Unknown]

NARRATIVE: CASE EVENT DATE: 20250530
